FAERS Safety Report 23378641 (Version 1)
Quarter: 2024Q1

REPORT INFORMATION
  Report Type: Spontaneous
  Country: CA (occurrence: CA)
  Receive Date: 20240108
  Receipt Date: 20240108
  Transmission Date: 20240409
  Serious: Yes (Hospitalization)
  Sender: FDA-Public Use
  Company Number: CA-FreseniusKabi-FK202400204

PATIENT
  Age: 63 Year
  Sex: Male
  Weight: 68 kg

DRUGS (35)
  1. FLUDARABINE [Suspect]
     Active Substance: FLUDARABINE PHOSPHATE
     Indication: Bone graft
     Dosage: FORM OF ADMIN. NOT SPECIFIED
  2. BUSULFAN [Suspect]
     Active Substance: BUSULFAN
     Indication: Bone graft
     Dosage: FORM OF ADMIN. NOT SPECIFIED
  3. THYMOGLOBULIN [Suspect]
     Active Substance: LAPINE T-LYMPHOCYTE IMMUNE GLOBULIN
     Indication: Bone graft
     Dosage: FORM OF ADMIN. POWDER FOR SOLUTION INTRAVENOUS
  4. THYMOGLOBULIN [Suspect]
     Active Substance: LAPINE T-LYMPHOCYTE IMMUNE GLOBULIN
     Dosage: FORM OF ADMIN. POWDER FOR SOLUTION INTRAVENOUS
  5. ACETAMINOPHEN [Concomitant]
     Active Substance: ACETAMINOPHEN
     Indication: Product used for unknown indication
     Dosage: FORM OF ADMIN. NOT SPECIFIED
  6. ACYCLOVIR [Concomitant]
     Active Substance: ACYCLOVIR
     Indication: Product used for unknown indication
     Dosage: FORM OF ADMIN. NOT SPECIFIED
  7. BETAINE [Concomitant]
     Active Substance: BETAINE
     Indication: Product used for unknown indication
     Dosage: FORM OF ADMIN. CAPSULES
  8. CASPOFUNGIN [Concomitant]
     Active Substance: CASPOFUNGIN
     Indication: Product used for unknown indication
  9. DAILY SUPER GREENS [Concomitant]
     Indication: Product used for unknown indication
     Dosage: FORM OF ADMIN. TABLET
  10. DEXAMETHASONE [Concomitant]
     Active Substance: DEXAMETHASONE
     Indication: Product used for unknown indication
     Dosage: FORM OF ADMIN. NOT SPECIFIED
  11. DIPHENHYDRAMINE [Concomitant]
     Active Substance: DIPHENHYDRAMINE
     Indication: Product used for unknown indication
     Dosage: FORM OF ADMIN. NOT SPECIFIED
  12. FUROSEMIDE [Concomitant]
     Active Substance: FUROSEMIDE
     Indication: Product used for unknown indication
     Dosage: FORM OF ADMIN. NOT SPECIFIED
  13. HYDROMORPHONE [Concomitant]
     Active Substance: HYDROMORPHONE
     Indication: Product used for unknown indication
     Dosage: FORM OF ADMIN. NOT SPECIFIED
  14. LEVETIRACETAM [Concomitant]
     Active Substance: LEVETIRACETAM
     Indication: Product used for unknown indication
     Dosage: FORM OF ADMIN. TABLETS
  15. LIVER EXTRACT [Concomitant]
     Active Substance: MAMMAL LIVER
     Indication: Product used for unknown indication
     Dosage: FORM OF ADMIN. NOT SPECIFIED
  16. LORAZEPAM [Concomitant]
     Active Substance: LORAZEPAM
     Indication: Product used for unknown indication
     Dosage: FORM OF ADMIN. NOT SPECIFIED
  17. LUGOLS SOL [Concomitant]
     Indication: Product used for unknown indication
     Dosage: FORM OF ADMIN. NOT SPECIFIED
  18. NYSTATIN [Concomitant]
     Active Substance: NYSTATIN
     Indication: Product used for unknown indication
     Dosage: FORM OF ADMIN. TABLETS
  19. METHOTREXATE [Concomitant]
     Active Substance: METHOTREXATE
     Indication: Product used for unknown indication
     Dosage: FORM OF ADMIN. NOT SPECIFIED
  20. METHYLPREDNISOLONE SODIUM SUCCINATE [Concomitant]
     Active Substance: METHYLPREDNISOLONE SODIUM SUCCINATE
     Indication: Product used for unknown indication
     Dosage: FORM OF ADMIN. NOT SPECIFIED
  21. METOCLOPRAMIDE [Concomitant]
     Active Substance: METOCLOPRAMIDE
     Indication: Product used for unknown indication
     Dosage: FORM OF ADMIN. NOT SPECIFIED
  22. ONDANSETRON [Concomitant]
     Active Substance: ONDANSETRON
     Indication: Product used for unknown indication
     Dosage: FORM OF ADMIN. NOT SPECIFIED
  23. PANCREATIN [Concomitant]
     Active Substance: PANCRELIPASE
     Indication: Product used for unknown indication
     Dosage: FORM OF ADMIN. NOT SPECIFIED
  24. PANTOPRAZOLE [Concomitant]
     Active Substance: PANTOPRAZOLE
     Indication: Product used for unknown indication
     Dosage: FORM OF ADMIN. NOT SPECIFIED
  25. POLYETHYLENE GLYCOL 3350 [Concomitant]
     Active Substance: POLYETHYLENE GLYCOL 3350
     Indication: Product used for unknown indication
     Dosage: FORM OF ADMIN. NOT SPECIFIED
  26. PROCHLORPERAZINE [Concomitant]
     Active Substance: PROCHLORPERAZINE
     Indication: Product used for unknown indication
     Dosage: FORM OF ADMIN. NOT SPECIFIED
  27. SELENIUM [Concomitant]
     Active Substance: SELENIUM
     Indication: Product used for unknown indication
     Dosage: FORM OF ADMIN. NOT SPECIFIED
  28. TACROLIMUS [Concomitant]
     Active Substance: TACROLIMUS
     Indication: Product used for unknown indication
     Dosage: FORM OF ADMIN. CAPSULES
  29. THYROID GLAND [Concomitant]
     Indication: Product used for unknown indication
     Dosage: FORM OF ADMIN. CAPSULE
  30. SULFAMETHOXAZOLE\TRIMETHOPRIM [Concomitant]
     Active Substance: SULFAMETHOXAZOLE\TRIMETHOPRIM
     Indication: Product used for unknown indication
     Dosage: FORM OF ADMIN. NOT SPECIFIED
  31. URSODIOL [Concomitant]
     Active Substance: URSODIOL
     Indication: Product used for unknown indication
     Dosage: FORM OF ADMIN. NOT SPECIFIED
  32. VALACYCLOVIR [Concomitant]
     Active Substance: VALACYCLOVIR HYDROCHLORIDE
     Indication: Product used for unknown indication
     Dosage: FORM OF ADMIN. NOT SPECIFIED
  33. VITAMIN B12 [Concomitant]
     Active Substance: CYANOCOBALAMIN
     Indication: Product used for unknown indication
     Dosage: FORM OF ADMIN. NOT SPECIFIED
  34. VITAMIN C [Concomitant]
     Active Substance: ASCORBIC ACID
     Indication: Product used for unknown indication
     Dosage: FORM OF ADMIN. NOT SPECIFIED
  35. VITAMIN D [Concomitant]
     Active Substance: VITAMIN D NOS
     Indication: Product used for unknown indication
     Dosage: FORM OF ADMIN. NOT SPECIFIED

REACTIONS (1)
  - Febrile neutropenia [Recovered/Resolved]
